FAERS Safety Report 5928774-9 (Version None)
Quarter: 2008Q4

REPORT INFORMATION
  Report Type: 
  Country: None (occurrence: None)
  Receive Date: 20081023
  Receipt Date: 20081023
  Transmission Date: 20090506
  Serious: Yes (Other)
  Sender: FDA-Public Use
  Company Number: None

PATIENT
  Age: 28 Year
  Sex: Male

DRUGS (1)
  1. PROAIR HFA [Suspect]
     Indication: ASTHMA
     Dosage: 1-2 INHALATIONS EVERY 4 HRS PRN PO
     Route: 048
     Dates: start: 20080926, end: 20081021

REACTIONS (2)
  - DEVICE FAILURE [None]
  - PRODUCT QUALITY ISSUE [None]
